FAERS Safety Report 4685883-2 (Version None)
Quarter: 2005Q2

REPORT INFORMATION
  Report Type: 
  Country: None (occurrence: None)
  Receive Date: 20050606
  Receipt Date: 20050525
  Transmission Date: 20051028
  Serious: Yes (Other)
  Sender: FDA-Public Use
  Company Number: 2005070825

PATIENT
  Age: 54 Year
  Sex: Male
  Weight: 83.9154 kg

DRUGS (3)
  1. SUDAFED 12 HOUR [Suspect]
     Indication: DYSPEPSIA
     Dosage: 1 CAP Q12H, 1 WEEK AT A TIME PRN, ORAL
     Route: 047
     Dates: start: 20050412, end: 20050419
  2. SUDAFED 12 HOUR [Suspect]
     Indication: NASOPHARYNGITIS
     Dosage: 1 CAP Q12H, 1 WEEK AT A TIME PRN, ORAL
     Route: 047
     Dates: start: 20050412, end: 20050419
  3. ROLAIDS (CALCIUM CARBONATE0 [Suspect]
     Indication: DYSPEPSIA
     Dosage: 2 TABS PRN, ORAL
     Route: 048
     Dates: start: 20050419, end: 20050419

REACTIONS (2)
  - MOLE EXCISION [None]
  - OPERATIVE HAEMORRHAGE [None]
